FAERS Safety Report 9326664 (Version 1)
Quarter: 2013Q2

REPORT INFORMATION
  Report Type: Spontaneous
  Country: AU (occurrence: AU)
  Receive Date: 20130604
  Receipt Date: 20130604
  Transmission Date: 20140414
  Serious: Yes (Hospitalization, Other)
  Sender: FDA-Public Use
  Company Number: PHHY2013AU054541

PATIENT
  Age: 4 Year
  Sex: Female

DRUGS (1)
  1. VENLAFAXINE [Suspect]

REACTIONS (19)
  - Pyrexia [Recovered/Resolved]
  - Accidental exposure to product by child [Unknown]
  - Extrapyramidal disorder [Recovered/Resolved]
  - Dystonia [Recovered/Resolved]
  - Locked-in syndrome [Recovered/Resolved]
  - Urinary incontinence [Recovered/Resolved]
  - Flushing [Recovered/Resolved]
  - Drooling [Recovered/Resolved]
  - Musculoskeletal stiffness [Recovered/Resolved]
  - Hypokinesia [Recovered/Resolved]
  - Tachycardia [Recovered/Resolved]
  - Muscle rigidity [Recovered/Resolved]
  - Nuchal rigidity [Recovered/Resolved]
  - Extensor plantar response [Recovered/Resolved]
  - Abasia [Recovered/Resolved]
  - Autonomic nervous system imbalance [Recovered/Resolved]
  - Hypertension [Recovered/Resolved]
  - Mydriasis [Recovered/Resolved]
  - Bradykinesia [Recovered/Resolved]
